FAERS Safety Report 18986051 (Version 2)
Quarter: 2021Q2

REPORT INFORMATION
  Report Type: Report from Study
  Country: GB (occurrence: GB)
  Receive Date: 20210309
  Receipt Date: 20210415
  Transmission Date: 20210717
  Serious: Yes (Other)
  Sender: FDA-Public Use
  Company Number: GB-ACCORD-219031

PATIENT
  Age: 54 Year
  Sex: Female

DRUGS (2)
  1. BENEPALI [Suspect]
     Active Substance: ETANERCEPT
     Indication: RHEUMATOID ARTHRITIS
     Route: 058
  2. METHOTREXATE. [Suspect]
     Active Substance: METHOTREXATE
     Indication: PRODUCT USED FOR UNKNOWN INDICATION
     Route: 065

REACTIONS (16)
  - Spinal synovial cyst [Unknown]
  - Nerve injury [Unknown]
  - Peripheral swelling [Unknown]
  - Eye infection [Unknown]
  - Ocular hyperaemia [Unknown]
  - Mobility decreased [Unknown]
  - Tremor [Unknown]
  - Arthropathy [Unknown]
  - Xerophthalmia [Unknown]
  - Arthralgia [Unknown]
  - Adverse drug reaction [Unknown]
  - Neuralgia [Unknown]
  - Stress [Unknown]
  - Anxiety [Unknown]
  - Internal haemorrhage [Unknown]
  - Appetite disorder [Unknown]
